FAERS Safety Report 22026585 (Version 1)
Quarter: 2023Q1

REPORT INFORMATION
  Report Type: Spontaneous
  Country: US (occurrence: US)
  Receive Date: 20230223
  Receipt Date: 20230223
  Transmission Date: 20230417
  Serious: No
  Sender: FDA-Public Use
  Company Number: US-Accord-291360

PATIENT
  Age: 34 Year
  Sex: Female
  Weight: 56.70 kg

DRUGS (3)
  1. VILAZODONE HYDROCHLORIDE [Suspect]
     Active Substance: VILAZODONE HYDROCHLORIDE
     Indication: Anxiety
     Dosage: 10 MG, ONCE A DAY
     Route: 048
     Dates: start: 202208
  2. VILAZODONE HYDROCHLORIDE [Suspect]
     Active Substance: VILAZODONE HYDROCHLORIDE
     Indication: Anxiety
     Dosage: 20 MG
     Dates: start: 202209
  3. VILAZODONE HYDROCHLORIDE [Suspect]
     Active Substance: VILAZODONE HYDROCHLORIDE
     Indication: Anxiety
     Dosage: 10 MG
     Route: 048

REACTIONS (4)
  - Abnormal weight gain [Unknown]
  - Product dose omission issue [Unknown]
  - Pruritus [Unknown]
  - Off label use [Unknown]
